FAERS Safety Report 7674664-3 (Version None)
Quarter: 2011Q3

REPORT INFORMATION
  Report Type: 
  Country: None (occurrence: None)
  Receive Date: 20110810
  Receipt Date: 20110801
  Transmission Date: 20111222
  Serious: Yes (Other)
  Sender: FDA-Public Use
  Company Number: US-ROCHE-794529

PATIENT
  Sex: Female

DRUGS (3)
  1. FEMARA [Suspect]
     Dosage: APPROXIMATELY FOR 2 YEARS
     Route: 065
  2. TYKERB [Suspect]
     Route: 065
  3. XELODA [Suspect]
     Dosage: APPROXIMATELY FOR 6 MONTHS
     Route: 065

REACTIONS (2)
  - IMPAIRED HEALING [None]
  - METASTATIC NEOPLASM [None]
